FAERS Safety Report 7924741-4 (Version None)
Quarter: 2011Q4

REPORT INFORMATION
  Report Type: 
  Country: None (occurrence: None)
  Receive Date: 20111118
  Receipt Date: 20110328
  Transmission Date: 20120403
  Serious: No
  Sender: FDA-Public Use
  Company Number: US-AMGEN-USASP2011014327

PATIENT
  Age: 47 Year
  Sex: Female

DRUGS (2)
  1. ENBREL [Suspect]
     Indication: PSORIASIS
     Dosage: 50 MG, 2 TIMES/WK
     Route: 058
     Dates: start: 20100520, end: 20110217
  2. CYMBALTA [Concomitant]
     Dosage: UNK
     Dates: end: 20101001

REACTIONS (3)
  - ECZEMA [None]
  - DERMATITIS PSORIASIFORM [None]
  - INJECTION SITE IRRITATION [None]
